FAERS Safety Report 16466777 (Version 4)
Quarter: 2019Q3

REPORT INFORMATION
  Report Type: Report from Study
  Country: None (occurrence: IL)
  Receive Date: 20190623
  Receipt Date: 20190723
  Transmission Date: 20191004
  Serious: Yes (Hospitalization)
  Sender: FDA-Public Use
  Company Number: IL-ABBVIE-19K-082-2827476-00

PATIENT
  Age: 57 Year
  Sex: Male
  Weight: 74 kg

DRUGS (12)
  1. VENCLEXTA [Suspect]
     Active Substance: VENETOCLAX
     Indication: CHRONIC LYMPHOCYTIC LEUKAEMIA
     Route: 048
     Dates: start: 20190603, end: 20190609
  2. VENCLEXTA [Suspect]
     Active Substance: VENETOCLAX
     Route: 048
     Dates: start: 20190610, end: 20190616
  3. VENCLEXTA [Suspect]
     Active Substance: VENETOCLAX
     Route: 048
     Dates: start: 20190617, end: 20190623
  4. AUGMENTIN [Concomitant]
     Active Substance: AMOXICILLIN\CLAVULANATE POTASSIUM
     Indication: DRUG THERAPY
     Dates: start: 20190601, end: 20190621
  5. RITUXIMAB. [Suspect]
     Active Substance: RITUXIMAB
     Indication: PRODUCT USED FOR UNKNOWN INDICATION
     Dosage: ANTI CD 20
     Route: 065
     Dates: start: 20190708, end: 20190708
  6. HYDRATION [Concomitant]
     Active Substance: UNSPECIFIED INGREDIENT
     Indication: PRODUCT USED FOR UNKNOWN INDICATION
     Route: 042
     Dates: start: 20190603
  7. BONDORMIN [Concomitant]
     Active Substance: BROTIZOLAM
     Indication: DRUG THERAPY
     Dates: start: 20190601, end: 20190617
  8. TAZOCIN [Concomitant]
     Active Substance: PIPERACILLIN SODIUM\TAZOBACTAM SODIUM
     Indication: ANTIBIOTIC THERAPY
     Dates: start: 20190601, end: 20190617
  9. OPTALGIN [Concomitant]
     Active Substance: METAMIZOLE
     Indication: DRUG THERAPY
     Dates: start: 20190601, end: 20190619
  10. ALLERGYX [Concomitant]
     Active Substance: LORATADINE
     Indication: DRUG THERAPY
     Dates: start: 20190601, end: 20190619
  11. VENCLEXTA [Suspect]
     Active Substance: VENETOCLAX
     Route: 048
     Dates: start: 20190624, end: 20190630
  12. VENCLEXTA [Suspect]
     Active Substance: VENETOCLAX
     Route: 048
     Dates: start: 20190701

REACTIONS (3)
  - Hyponatraemia [Recovered/Resolved]
  - Hypophosphataemia [Recovered/Resolved]
  - Skin infection [Recovered/Resolved]

NARRATIVE: CASE EVENT DATE: 20190617
